FAERS Safety Report 5168926-1 (Version None)
Quarter: 2006Q4

REPORT INFORMATION
  Report Type: 
  Country: None (occurrence: None)
  Receive Date: 20061211
  Receipt Date: 20061204
  Transmission Date: 20070319
  Serious: Yes (Other)
  Sender: FDA-Public Use
  Company Number: FR-AVENTIS-200614267FR

PATIENT
  Age: 37 Year
  Sex: Female

DRUGS (3)
  1. KETEK [Suspect]
     Indication: SINUSITIS
     Route: 048
     Dates: start: 20060901, end: 20060901
  2. CORTICOSTEROIDS [Concomitant]
     Indication: SINUSITIS
  3. ACETAMINOPHEN [Concomitant]
     Indication: SINUSITIS

REACTIONS (3)
  - AGEUSIA [None]
  - ANOSMIA [None]
  - DYSAESTHESIA [None]
